FAERS Safety Report 8466802-X (Version None)
Quarter: 2012Q2

REPORT INFORMATION
  Report Type: 
  Country: None (occurrence: None)
  Receive Date: 20120619
  Receipt Date: 20120615
  Transmission Date: 20120825
  Serious: Yes (Death)
  Sender: FDA-Public Use
  Company Number: ADR-2012-00893

PATIENT
  Age: 48 Year
  Sex: Female

DRUGS (1)
  1. BACLOFEN [Suspect]
     Indication: MULTIPLE SCLEROSIS

REACTIONS (6)
  - RESPIRATORY FAILURE [None]
  - MONOPLEGIA [None]
  - PNEUMONIA [None]
  - NEUROGENIC BLADDER [None]
  - TREMOR [None]
  - COGNITIVE DISORDER [None]
